FAERS Safety Report 8216327-1 (Version None)
Quarter: 2012Q1

REPORT INFORMATION
  Report Type: 
  Country: None (occurrence: None)
  Receive Date: 20120316
  Receipt Date: 20120309
  Transmission Date: 20120608
  Serious: Yes (Death)
  Sender: FDA-Public Use
  Company Number: PHHY2012JP020797

PATIENT
  Sex: Female

DRUGS (5)
  1. OMEPRAZOLE [Concomitant]
     Route: 048
  2. EXELON [Suspect]
     Dosage: 4.5 MG, DAILY
     Route: 062
     Dates: start: 20111101
  3. ALFAROL [Concomitant]
     Route: 048
  4. VIVIANT [Concomitant]
     Route: 048
  5. MEMANTINE HYDROCHLORIDE [Concomitant]
     Route: 048

REACTIONS (1)
  - SUDDEN DEATH [None]
